FAERS Safety Report 5055853-3 (Version None)
Quarter: 2006Q3

REPORT INFORMATION
  Report Type: 
  Country: None (occurrence: None)
  Receive Date: 20060718
  Receipt Date: 20060718
  Transmission Date: 20061208
  Serious: Yes (Hospitalization)
  Sender: FDA-Public Use
  Company Number: None

PATIENT
  Age: 55 Year
  Sex: Male
  Weight: 107 kg

DRUGS (2)
  1. PENTOXIFYLLINE [Suspect]
     Indication: PERIPHERAL VASCULAR DISORDER
     Dosage: 400 MG TID PO
     Route: 048
  2. CLOPIDOGREL [Suspect]
     Indication: CORONARY ARTERY BYPASS
     Dosage: 75 MG QD PO
     Route: 048

REACTIONS (9)
  - ASTHENIA [None]
  - CONSTIPATION [None]
  - DELIRIUM [None]
  - DIZZINESS [None]
  - FATIGUE [None]
  - GASTROINTESTINAL EROSION [None]
  - GASTROINTESTINAL HAEMORRHAGE [None]
  - HAEMORRHOID OPERATION [None]
  - REFUSAL OF TREATMENT BY PATIENT [None]
